FAERS Safety Report 4883832-5 (Version None)
Quarter: 2006Q1

REPORT INFORMATION
  Report Type: 
  Country: None (occurrence: None)
  Receive Date: 20060112
  Receipt Date: 20060106
  Transmission Date: 20060701
  Serious: Yes (Death)
  Sender: FDA-Public Use
  Company Number: 219798

PATIENT
  Age: 48 Year
  Sex: Male

DRUGS (1)
  1. RAPTIVA [Suspect]
     Indication: PSORIASIS
     Dosage: 0.13 , 1/WEEK, SUBCUTANEOUS
     Route: 058
     Dates: start: 20050117, end: 20051108

REACTIONS (3)
  - CIRRHOSIS ALCOHOLIC [None]
  - THROMBOCYTOPENIA [None]
  - WHITE BLOOD CELL COUNT INCREASED [None]
